FAERS Safety Report 8881966 (Version 1)
Quarter: 2012Q4

REPORT INFORMATION
  Report Type: 
  Country: CA (occurrence: CA)
  Receive Date: 20121102
  Receipt Date: 20121102
  Transmission Date: 20130627
  Serious: Yes (Hospitalization)
  Sender: FDA-Public Use
  Company Number: PHMT2006CA01040

PATIENT
  Age: 47 Year
  Sex: Female

DRUGS (7)
  1. ZOMETA [Suspect]
     Indication: BREAST CANCER
     Route: 042
     Dates: start: 20040901
  2. DURAGESIC [Concomitant]
  3. HYDROMORPHONE [Concomitant]
  4. LOSEC [Concomitant]
  5. FENTANYL [Concomitant]
     Route: 062
  6. HERCEPTIN [Concomitant]
  7. VINORELBINE [Concomitant]

REACTIONS (16)
  - Adrenal disorder [Unknown]
  - Pain [Unknown]
  - Fatigue [Unknown]
  - Asthenia [Unknown]
  - Oedema peripheral [Unknown]
  - Lymphadenopathy [Unknown]
  - Local swelling [Unknown]
  - Catheter site pain [Unknown]
  - Rhinorrhoea [Unknown]
  - Incorrect drug administration rate [Unknown]
  - Epistaxis [Unknown]
  - Aspartate aminotransferase increased [Unknown]
  - Alanine aminotransferase increased [Unknown]
  - Blood lactate dehydrogenase increased [Unknown]
  - Haematocrit decreased [Unknown]
  - Haemoglobin decreased [Unknown]
